FAERS Safety Report 9173928 (Version 1)
Quarter: 2013Q1

REPORT INFORMATION
  Report Type: Spontaneous
  Country: JP (occurrence: None)
  Receive Date: 20130315
  Receipt Date: 20130315
  Transmission Date: 20140127
  Serious: Yes (Hospitalization, Other)
  Sender: FDA-Public Use
  Company Number: 2009JP000018

PATIENT
  Age: 25 Year
  Sex: Female
  Weight: 66.9 kg

DRUGS (18)
  1. PROGRAF (TACROLIMUS) CAPSULE [Suspect]
     Indication: LUPUS NEPHRITIS
     Route: 048
     Dates: start: 20081017, end: 20090122
  2. PREDONINE [Suspect]
     Indication: LUPUS NEPHRITIS
     Route: 048
     Dates: end: 20080307
  3. BUFFERIN (ACETYLSALICYLIC ACID) [Concomitant]
  4. PARIET (RABEPRAZOLE SODIUM) [Concomitant]
  5. CONAN (QUINAPRIL HYDROCHLORIDE) [Concomitant]
  6. NU-LOTAN (LOSARTAN POTASSIUM) [Concomitant]
  7. OLMETEC (OLMESARTAN MEDOXOMIL) [Concomitant]
  8. GASLON (IRSOGLADINE MALEATE) [Concomitant]
  9. BAKTAR (SULFAMETHOXAZOLE, TRIMETHOPRIM) TABLET [Concomitant]
  10. LOCHOL (FLUVASTATIN) [Concomitant]
  11. ZETIA (EZETIMIBE) [Concomitant]
  12. SELARA (EPLERENONE) TABLET [Concomitant]
  13. HUMULIN R (INSULIN HUMAN) [Concomitant]
  14. GLUCOBAY (ACARBOSE) [Concomitant]
  15. ACTOS (PIOGLITAZONE) [Concomitant]
  16. AMARYL (GLIMEPIRIDE) [Concomitant]
  17. IRBETAN (IRBESARTAN) TABLET [Concomitant]
  18. ACTONEL (RISEDRONATE SODIUM) TABLET [Concomitant]

REACTIONS (7)
  - Nasopharyngitis [None]
  - Lymphadenopathy [None]
  - Blood glucose increased [None]
  - Glucose urine present [None]
  - Bacteriuria [None]
  - Platelet count increased [None]
  - Hypochloraemia [None]
